FAERS Safety Report 11409643 (Version 1)
Quarter: 2015Q3

REPORT INFORMATION
  Report Type: Spontaneous
  Country: US (occurrence: US)
  Receive Date: 20150824
  Receipt Date: 20150824
  Transmission Date: 20151125
  Serious: No
  Sender: FDA-Public Use
  Company Number: US-DRREDDYS-USA/USA/15/0048666

PATIENT
  Age: 46 Year
  Sex: Female

DRUGS (1)
  1. SUMATRIPTAN INJECTION USP, 6 MG/0.5 ML [Suspect]
     Active Substance: SUMATRIPTAN
     Indication: MIGRAINE
     Dosage: INJECT 1 PEN (6MG) UNDER THE SKIN IMMEDIATELY AS DIRECTED; MAY REPEAT AFTER 1 HOUR
     Route: 058
     Dates: start: 201503

REACTIONS (2)
  - Drug dose omission [Unknown]
  - Product physical issue [Unknown]
